FAERS Safety Report 9895752 (Version 1)
Quarter: 2014Q1

REPORT INFORMATION
  Report Type: Spontaneous
  Country: US (occurrence: US)
  Receive Date: 20140213
  Receipt Date: 20140213
  Transmission Date: 20141002
  Serious: No
  Sender: FDA-Public Use
  Company Number: US-BRISTOL-MYERS SQUIBB COMPANY-19002237

PATIENT
  Age: 62 Year
  Sex: Female
  Weight: 84.8 kg

DRUGS (8)
  1. ABATACEPT SUBQ INJECTION 125MG/ML [Suspect]
     Dosage: 1 DF= 125 MG/ML
     Route: 058
  2. ALBUTEROL [Concomitant]
     Dosage: AEROSOL
  3. FORADIL [Concomitant]
     Dosage: CAP AEROLIZE
  4. NAPROXEN SODIUM [Concomitant]
     Dosage: TABS
  5. METHOTREXATE TABS [Concomitant]
  6. FOLIC ACID [Concomitant]
     Dosage: TABS
  7. SYNTHROID [Concomitant]
     Dosage: TABS
  8. HYDROCHLOROTHIAZIDE [Concomitant]
     Dosage: CAPS

REACTIONS (2)
  - Pain in extremity [Unknown]
  - Paraesthesia [Unknown]
